FAERS Safety Report 18699278 (Version 2)
Quarter: 2021Q1

REPORT INFORMATION
  Report Type: Report from Study
  Country: US (occurrence: US)
  Receive Date: 20210104
  Receipt Date: 20210119
  Transmission Date: 20210419
  Serious: Yes (Other)
  Sender: FDA-Public Use
  Company Number: US-BIOGEN-2020BI00955399

PATIENT
  Sex: Female

DRUGS (2)
  1. VUMERITY [Suspect]
     Active Substance: DIROXIMEL FUMARATE
     Route: 048
  2. VUMERITY [Suspect]
     Active Substance: DIROXIMEL FUMARATE
     Indication: MULTIPLE SCLEROSIS
     Route: 048
     Dates: start: 20201124

REACTIONS (8)
  - Fatigue [Unknown]
  - Dehydration [Unknown]
  - Muscle spasms [Unknown]
  - Eyelid disorder [Unknown]
  - Carpal tunnel syndrome [Unknown]
  - Constipation [Unknown]
  - Migraine [Unknown]
  - Confusional state [Unknown]
